FAERS Safety Report 16582478 (Version 1)
Quarter: 2019Q3

REPORT INFORMATION
  Report Type: Spontaneous
  Country: IN (occurrence: IN)
  Receive Date: 20190717
  Receipt Date: 20190717
  Transmission Date: 20191004
  Serious: No
  Sender: FDA-Public Use
  Company Number: IN-LUPIN LIMITED-2018-06713

PATIENT
  Age: 40 Year
  Sex: Male

DRUGS (1)
  1. ODOXIL TABS 500 MG [Suspect]
     Active Substance: CEFADROXIL
     Indication: UPPER RESPIRATORY TRACT INFECTION
     Dosage: 1 DF, QD
     Route: 048
     Dates: start: 20180915

REACTIONS (2)
  - No adverse event [Unknown]
  - Prescription drug used without a prescription [Unknown]

NARRATIVE: CASE EVENT DATE: 20180915
